FAERS Safety Report 23574397 (Version 2)
Quarter: 2025Q1

REPORT INFORMATION
  Report Type: Spontaneous
  Country: FR (occurrence: FR)
  Receive Date: 20240228
  Receipt Date: 20250310
  Transmission Date: 20250409
  Serious: Yes (Death)
  Sender: TEVA
  Company Number: None

PATIENT
  Age: 54 Year
  Sex: Male

DRUGS (4)
  1. SPIRONOLACTONE [Suspect]
     Active Substance: SPIRONOLACTONE
     Indication: Left ventricular failure
     Route: 048
     Dates: start: 20160315
  2. PERINDOPRIL [Suspect]
     Active Substance: PERINDOPRIL
     Indication: Left ventricular failure
     Route: 048
     Dates: start: 20151115
  3. CORGARD [Suspect]
     Active Substance: NADOLOL
     Indication: Anomalous atrioventricular excitation
     Dosage: NOT ADMINISTERED, 80 MG, SCORED TABLET
     Route: 065
     Dates: start: 20171206, end: 20231127
  4. BISOPROLOL [Suspect]
     Active Substance: BISOPROLOL
     Indication: Anomalous atrioventricular excitation
     Route: 065
     Dates: start: 20231128

REACTIONS (2)
  - Death [Fatal]
  - Product availability issue [Fatal]

NARRATIVE: CASE EVENT DATE: 20231128
